FAERS Safety Report 25012207 (Version 1)
Quarter: 2025Q1

REPORT INFORMATION
  Report Type: Spontaneous
  Country: GB (occurrence: GB)
  Receive Date: 20250226
  Receipt Date: 20250226
  Transmission Date: 20250409
  Serious: Yes (Other)
  Sender: AUROBINDO
  Company Number: GB-MHRA-MED-202502101716428690-HCQMT

PATIENT
  Age: 96 Year
  Sex: Male
  Weight: 68 kg

DRUGS (2)
  1. AMOXICILLIN\CLAVULANATE POTASSIUM [Suspect]
     Active Substance: AMOXICILLIN\CLAVULANATE POTASSIUM
     Indication: Product used for unknown indication
     Route: 048
     Dates: start: 20250116, end: 20250127
  2. FERRIC DERISOMALTOSE [Concomitant]
     Active Substance: FERRIC DERISOMALTOSE
     Indication: Product used for unknown indication
     Route: 065
     Dates: start: 20250131, end: 20250201

REACTIONS (2)
  - Tongue discolouration [Not Recovered/Not Resolved]
  - Trichoglossia [Not Recovered/Not Resolved]

NARRATIVE: CASE EVENT DATE: 20250210
